FAERS Safety Report 7264172-6 (Version None)
Quarter: 2011Q1

REPORT INFORMATION
  Report Type: 
  Country: None (occurrence: None)
  Receive Date: 20110120
  Receipt Date: 20110110
  Transmission Date: 20110831
  Serious: Yes (Other)
  Sender: FDA-Public Use
  Company Number: DKLU1067526

PATIENT
  Age: 35 Year
  Sex: Male

DRUGS (7)
  1. FELBATOL [Concomitant]
  2. DILANTIN [Concomitant]
  3. SABRIL [Suspect]
     Indication: INFANTILE SPASMS
     Dosage: 500 MG MILLIGRAM(S), 2 IN 1 D, ORAL; 500 MG MILLIGRAM(S), 4 IN 1  D, ORAL
     Route: 048
     Dates: start: 20101229, end: 20110103
  4. VIMPAT [Concomitant]
  5. TEGRETOL [Concomitant]
  6. LORAZEPAM [Concomitant]
  7. LYRICA [Concomitant]

REACTIONS (2)
  - EYE MOVEMENT DISORDER [None]
  - BRADYPHRENIA [None]
